FAERS Safety Report 8052173-X (Version None)
Quarter: 2012Q1

REPORT INFORMATION
  Report Type: 
  Country: None (occurrence: None)
  Receive Date: 20120118
  Receipt Date: 20120110
  Transmission Date: 20120608
  Serious: No
  Sender: FDA-Public Use
  Company Number: US-PFIZER INC-2012008291

PATIENT
  Sex: Male
  Weight: 92.971 kg

DRUGS (11)
  1. GENOTROPIN [Suspect]
     Dosage: UNK
     Dates: start: 20100601
  2. ZOLPIDEM [Concomitant]
     Dosage: 12.5 MG, 1X/DAY QHS
  3. OMNITROPE [Suspect]
     Indication: HYPOTHALAMO-PITUITARY DISORDER
     Dosage: 0.6 MG, DAILY; 5MG CARTRIDGE
     Dates: start: 20111031
  4. FLOMAX [Concomitant]
     Dosage: 0.4 MG, 1X/DAY
  5. CO-Q-10 [Concomitant]
     Dosage: 100 MG, 1X/DAY
  6. LEVOXYL [Concomitant]
     Dosage: 150 MG, 1X/DAY
  7. CORTEF [Suspect]
     Dosage: 70 MG, DAILY
  8. LISINOPRIL [Concomitant]
     Dosage: 40 MG, DAILY
  9. PROBIOTICS [Concomitant]
     Dosage: ONCE DAILY
  10. OMNITROPE [Suspect]
     Indication: HYPOPITUITARISM
  11. ASPIRIN [Concomitant]
     Dosage: 81 MG, 1X/DAY

REACTIONS (2)
  - SWELLING FACE [None]
  - CYST [None]
